FAERS Safety Report 9629771 (Version 1)
Quarter: 2013Q4

REPORT INFORMATION
  Report Type: Spontaneous
  Country: CN (occurrence: CN)
  Receive Date: 20131017
  Receipt Date: 20131017
  Transmission Date: 20140711
  Serious: Yes (Hospitalization)
  Sender: FDA-Public Use
  Company Number: CN-GLAXOSMITHKLINE-B0931656A

PATIENT
  Age: 33 Year
  Sex: Male
  Weight: 70 kg

DRUGS (2)
  1. HEPTODIN [Suspect]
     Indication: HEPATITIS B
     Dosage: 1TAB PER DAY
     Route: 048
     Dates: start: 201007, end: 201212
  2. HEPTODIN [Suspect]
     Indication: HEPATITIS B
     Route: 048
     Dates: start: 201302

REACTIONS (2)
  - Transaminases increased [Recovered/Resolved]
  - Fatigue [Not Recovered/Not Resolved]
